FAERS Safety Report 7938470-4 (Version None)
Quarter: 2011Q4

REPORT INFORMATION
  Report Type: 
  Country: None (occurrence: None)
  Receive Date: 20111123
  Receipt Date: 20111118
  Transmission Date: 20120403
  Serious: Yes (Hospitalization, Other)
  Sender: FDA-Public Use
  Company Number: US-ABBOTT-11P-163-0869380-00

PATIENT
  Sex: Female
  Weight: 61.744 kg

DRUGS (7)
  1. SEVELLA [Concomitant]
     Indication: RHEUMATOID ARTHRITIS
     Route: 048
  2. HUMIRA [Suspect]
     Route: 058
     Dates: start: 20111025
  3. PLAQUENIL [Concomitant]
     Indication: RHEUMATOID ARTHRITIS
  4. HUMIRA [Suspect]
     Indication: RHEUMATOID ARTHRITIS
     Route: 058
     Dates: start: 20090701, end: 20110101
  5. ASCORBIC ACID [Concomitant]
     Indication: VITAMIN SUPPLEMENTATION
  6. FOLIC ACID [Concomitant]
     Indication: RHEUMATOID ARTHRITIS
  7. GLUCOSAMINE [Concomitant]
     Indication: ARTHROPATHY

REACTIONS (8)
  - ARTHRALGIA [None]
  - LYMPH GLAND INFECTION [None]
  - EXPIRED DRUG ADMINISTERED [None]
  - MYCOBACTERIUM AVIUM COMPLEX INFECTION [None]
  - JOINT SWELLING [None]
  - LACERATION [None]
  - WOUND INFECTION [None]
  - RHEUMATOID ARTHRITIS [None]
